FAERS Safety Report 20660233 (Version 2)
Quarter: 2022Q1

REPORT INFORMATION
  Report Type: Spontaneous
  Country: US (occurrence: US)
  Receive Date: 20220331
  Receipt Date: 20220331
  Transmission Date: 20220423
  Serious: No
  Sender: FDA-Public Use
  Company Number: US-KREUSSLER-2022-US-000016

PATIENT
  Age: 41 Year
  Sex: Female

DRUGS (1)
  1. ASCLERA [Suspect]
     Active Substance: POLIDOCANOL
     Indication: Sclerotherapy
     Dosage: 1.5 ML TOTAL IN 3 TREATMENT AREAS
     Dates: start: 20211208, end: 20211208

REACTIONS (2)
  - Injection site discolouration [Not Recovered/Not Resolved]
  - Application site rash [Not Recovered/Not Resolved]
